FAERS Safety Report 11779284 (Version 1)
Quarter: 2015Q4

REPORT INFORMATION
  Report Type: Spontaneous
  Country: AU (occurrence: AU)
  Receive Date: 20151125
  Receipt Date: 20151125
  Transmission Date: 20160304
  Serious: Yes (Other)
  Sender: FDA-Public Use
  Company Number: AU-PURDUE PHARMA-GBR-2015-0032300

PATIENT
  Age: 84 Year
  Sex: Female
  Weight: 45.7 kg

DRUGS (20)
  1. MOVICOL [Suspect]
     Active Substance: POLYETHYLENE GLYCOL 3350\POTASSIUM CHLORIDE\SODIUM BICARBONATE\SODIUM CHLORIDE
     Indication: PRODUCT USED FOR UNKNOWN INDICATION
     Dosage: 1 SACHET IN THE MORNING REGULARLY AND 1 AT NIGHT PRN
     Route: 048
     Dates: start: 20131024
  2. LERCANIDIPINE [Suspect]
     Active Substance: LERCANIDIPINE
     Indication: HYPERTENSION
     Dosage: UNK
     Route: 048
     Dates: end: 20150820
  3. CITALOPRAM [Suspect]
     Active Substance: CITALOPRAM HYDROBROMIDE
     Dosage: 20 MG, DAILY
     Route: 048
     Dates: start: 20150416
  4. CITALOPRAM [Suspect]
     Active Substance: CITALOPRAM HYDROBROMIDE
     Dosage: 40 MG, DAILY
     Route: 048
     Dates: start: 20150226
  5. ASPIRIN. [Suspect]
     Active Substance: ASPIRIN
     Indication: PRODUCT USED FOR UNKNOWN INDICATION
     Dosage: 100 MG, DAILY
     Route: 048
     Dates: start: 20130903
  6. PRAMIPEXOLE. [Suspect]
     Active Substance: PRAMIPEXOLE
     Indication: PARKINSON^S DISEASE
     Dosage: 0.125 MG, TID
     Route: 048
     Dates: start: 20130903, end: 20151114
  7. INSULIN GLARGINE [Suspect]
     Active Substance: INSULIN GLARGINE
     Indication: DIABETES MELLITUS
     Dosage: 100IU/ML, 6 UNITS IN MORNING
     Route: 058
     Dates: start: 20150407, end: 20151114
  8. CITALOPRAM [Suspect]
     Active Substance: CITALOPRAM HYDROBROMIDE
     Indication: DEPRESSION
     Dosage: 20 MG, DAILY
     Route: 048
  9. PARACETAMOL [Suspect]
     Active Substance: ACETAMINOPHEN
     Dosage: TDS WITH NOCTE PRN DOSE AS PER REQUEST
     Route: 048
     Dates: start: 20150611
  10. TARGIN 10/5MG [Suspect]
     Active Substance: NALOXONE HYDROCHLORIDE\OXYCODONE HYDROCHLORIDE
     Indication: PRODUCT USED FOR UNKNOWN INDICATION
     Dosage: 10/5 MG, BID
     Route: 048
     Dates: start: 20130903, end: 20151114
  11. FRUSEMIDE                          /00032601/ [Suspect]
     Active Substance: FUROSEMIDE
     Indication: PRODUCT USED FOR UNKNOWN INDICATION
     Dosage: 20 MG, DAILY
     Route: 048
     Dates: start: 20130903, end: 20151114
  12. CANDESARTAN [Suspect]
     Active Substance: CANDESARTAN
     Indication: HYPERTENSION
     Dosage: 16 MG, BID
     Route: 048
     Dates: start: 20150810, end: 20151114
  13. SOMAC [Suspect]
     Active Substance: PANTOPRAZOLE SODIUM
     Indication: GASTROOESOPHAGEAL REFLUX DISEASE
     Dosage: 20 MG, DAILY
     Route: 048
     Dates: start: 20150407
  14. COLOXYL WITH SENNA [Suspect]
     Active Substance: DOCUSATE\SENNOSIDES
     Indication: PRODUCT USED FOR UNKNOWN INDICATION
     Dosage: 2 BD
     Route: 048
     Dates: start: 20130903
  15. CITALOPRAM [Suspect]
     Active Substance: CITALOPRAM HYDROBROMIDE
     Dosage: UNK
     Route: 048
  16. METFORMIN [Suspect]
     Active Substance: METFORMIN HYDROCHLORIDE
     Indication: DIABETES MELLITUS
     Dosage: 1000 MG, BID
     Route: 048
     Dates: start: 20150713, end: 20151114
  17. PARACETAMOL [Suspect]
     Active Substance: ACETAMINOPHEN
     Indication: PAIN
     Dosage: 1 G, TID
     Route: 048
     Dates: start: 20150407
  18. HYDROZOLE [Suspect]
     Active Substance: CLOTRIMAZOLE\HYDROCORTISONE
     Indication: PRODUCT USED FOR UNKNOWN INDICATION
     Dosage: 1 %, DAILY
     Route: 061
     Dates: start: 20151010
  19. CHOLECALCIFEROL [Suspect]
     Active Substance: CHOLECALCIFEROL
     Indication: PRODUCT USED FOR UNKNOWN INDICATION
     Dosage: UNK
     Route: 048
     Dates: end: 20150716
  20. KINSON [Suspect]
     Active Substance: CARBIDOPA\LEVODOPA
     Indication: PARKINSON^S DISEASE
     Dosage: 100/25MG 2 TABLETS THREE
     Route: 048
     Dates: start: 20130903, end: 20151114

REACTIONS (19)
  - Delusion [Unknown]
  - Somnolence [Unknown]
  - Herpes zoster [Unknown]
  - Decreased appetite [Unknown]
  - Disturbance in attention [Unknown]
  - Urinary tract infection [Unknown]
  - Weight decreased [Unknown]
  - Hallucinations, mixed [Unknown]
  - Confusional state [Unknown]
  - Wrong technique in product usage process [Unknown]
  - Dementia [Unknown]
  - Faecal incontinence [Unknown]
  - Delirium [Unknown]
  - Crying [Unknown]
  - Pyrexia [Unknown]
  - Pain in extremity [Unknown]
  - Fatigue [Unknown]
  - Lethargy [Unknown]
  - Depressed mood [Unknown]

NARRATIVE: CASE EVENT DATE: 20150315
